FAERS Safety Report 25380587 (Version 1)
Quarter: 2025Q2

REPORT INFORMATION
  Report Type: Spontaneous
  Country: RO (occurrence: RO)
  Receive Date: 20250530
  Receipt Date: 20250530
  Transmission Date: 20250717
  Serious: Yes (Other)
  Sender: TAIHO ONCOLOGY INC
  Company Number: None

PATIENT
  Age: 60 Year
  Sex: Female

DRUGS (4)
  1. LONSURF [Suspect]
     Active Substance: TIPIRACIL HYDROCHLORIDE\TRIFLURIDINE
     Indication: Adenocarcinoma of colon
     Route: 048
     Dates: start: 202404, end: 202411
  2. BEVACIZUMAB [Suspect]
     Active Substance: BEVACIZUMAB
     Indication: Adenocarcinoma of colon
     Route: 065
     Dates: start: 202404
  3. FLUOROURACIL\LEUCOVORIN [Suspect]
     Active Substance: FLUOROURACIL\LEUCOVORIN
     Indication: Adenocarcinoma of colon
     Route: 065
  4. DENOSUMAB [Concomitant]
     Active Substance: DENOSUMAB
     Indication: Metastases to bone
     Route: 065

REACTIONS (3)
  - Metastases to lung [Unknown]
  - Therapeutic response unexpected [Recovered/Resolved]
  - Product use issue [Recovered/Resolved]
